FAERS Safety Report 9050454 (Version 1)
Quarter: 2013Q1

REPORT INFORMATION
  Report Type: Report from Study
  Country: PR (occurrence: US)
  Receive Date: 20130205
  Receipt Date: 20130205
  Transmission Date: 20140127
  Serious: Yes (Death)
  Sender: FDA-Public Use
  Company Number: PR-ACTELION-A-US2013-78406

PATIENT
  Age: 63 Year
  Sex: Male

DRUGS (3)
  1. TRACLEER [Suspect]
     Indication: PULMONARY ARTERIAL HYPERTENSION
     Dosage: UNK
     Route: 048
     Dates: end: 20121216
  2. SILDENAFIL [Concomitant]
  3. COUMADIN [Concomitant]
     Dosage: UNK

REACTIONS (1)
  - Death [Fatal]
